FAERS Safety Report 4283263-5 (Version None)
Quarter: 2004Q1

REPORT INFORMATION
  Report Type: 
  Country: None (occurrence: None)
  Receive Date: 20040129
  Receipt Date: 20031209
  Transmission Date: 20041129
  Serious: Yes (Disabling)
  Sender: FDA-Public Use
  Company Number: THYR-10034

PATIENT
  Age: 21 Year
  Sex: Female
  Weight: 46 kg

DRUGS (7)
  1. THYROGEN [Suspect]
     Indication: DIAGNOSTIC PROCEDURE
     Dosage: 0.9 MG QD IM
     Route: 030
     Dates: start: 20020211, end: 20020212
  2. TRISEQUENS [Concomitant]
  3. LEVOTHYROX [Concomitant]
  4. MINIDRIL [Concomitant]
  5. OSTRAM [Concomitant]
  6. UN ALFA [Concomitant]
  7. SEROPRAM [Concomitant]

REACTIONS (8)
  - ABASIA [None]
  - ARTHRALGIA [None]
  - ARTHRITIS [None]
  - ASTHENIA [None]
  - DIFFICULTY IN WALKING [None]
  - OSTEONECROSIS [None]
  - PAIN [None]
  - SYNOVITIS [None]
